FAERS Safety Report 6750249-8 (Version None)
Quarter: 2010Q2

REPORT INFORMATION
  Report Type: 
  Country: None (occurrence: None)
  Receive Date: 20100527
  Receipt Date: 20100512
  Transmission Date: 20101027
  Serious: Yes (Other)
  Sender: FDA-Public Use
  Company Number: 2010001849

PATIENT
  Age: 66 Year
  Sex: Male
  Weight: 76.6 kg

DRUGS (17)
  1. ERLOTINIB (ERLOTINIB HC1) (TABLET) (ERLOTINIB) [Suspect]
     Indication: NON-SMALL CELL LUNG CANCER
     Dosage: 150 MG, QD, ORAL
     Route: 048
     Dates: start: 20091015, end: 20100426
  2. CP-751-981 [Suspect]
     Indication: NON-SMALL CELL LUNG CANCER
     Dosage: 1560 MG, DAYS, 1 IN 2 EVERY 3 WEEKS, INTRAVENOUS
     Route: 042
     Dates: start: 20091015, end: 20100408
  3. ATIVAN (LORAZAPEM) [Concomitant]
  4. NYSTATIN [Concomitant]
  5. PERIOSTAT [Concomitant]
  6. IBUPROFEN [Concomitant]
  7. NEXIUM [Concomitant]
  8. DUONEB [Concomitant]
  9. NORVASC [Concomitant]
  10. LISINOPRIL [Concomitant]
  11. ALLOPURINOL [Concomitant]
  12. ATENOLOL [Concomitant]
  13. CIMETIDINE [Concomitant]
  14. FISH OIL (FISH OIL) [Concomitant]
  15. VITAMIN D (ERGOCALIFEROL) [Concomitant]
  16. GAVISCON [Concomitant]
  17. CALCIU WITH VITAMIN D (CALCIUM WITH VITAMIN D) [Concomitant]

REACTIONS (3)
  - BUNDLE BRANCH BLOCK [None]
  - REFUSAL OF TREATMENT BY PATIENT [None]
  - TROPONIN INCREASED [None]
